FAERS Safety Report 13932126 (Version 2)
Quarter: 2017Q4

REPORT INFORMATION
  Report Type: Spontaneous
  Country: US (occurrence: US)
  Receive Date: 20170904
  Receipt Date: 20171204
  Transmission Date: 20180320
  Serious: No
  Sender: FDA-Public Use
  Company Number: US-PFIZER INC-2017376321

PATIENT
  Age: 70 Year
  Sex: Female
  Weight: 65 kg

DRUGS (2)
  1. IBRANCE [Suspect]
     Active Substance: PALBOCICLIB
     Dosage: 125 MG, CYCLIC (D1-21 Q28 DAYS)
     Route: 048
     Dates: start: 20170519, end: 20171129
  2. IBRANCE [Suspect]
     Active Substance: PALBOCICLIB
     Indication: BREAST CANCER METASTATIC
     Dosage: 125 MG, CYCLIC (D1-21 Q28 DAYS)
     Route: 048
     Dates: start: 20170519, end: 2017

REACTIONS (2)
  - Neoplasm progression [Unknown]
  - White blood cell count decreased [Unknown]

NARRATIVE: CASE EVENT DATE: 2017
